FAERS Safety Report 12953996 (Version 1)
Quarter: 2016Q4

REPORT INFORMATION
  Report Type: Spontaneous
  Country: US (occurrence: US)
  Receive Date: 20161118
  Receipt Date: 20161118
  Transmission Date: 20170207
  Serious: No
  Sender: FDA-Public Use
  Company Number: US-AMGEN-USASP2016160347

PATIENT
  Age: 48 Year
  Sex: Male

DRUGS (3)
  1. ENBREL [Suspect]
     Active Substance: ETANERCEPT
     Dosage: UNK UNK, QWK
     Route: 065
  2. ENBREL [Suspect]
     Active Substance: ETANERCEPT
     Dosage: UNK UNK, QWK
     Route: 065
  3. ENBREL [Suspect]
     Active Substance: ETANERCEPT
     Indication: PSORIATIC ARTHROPATHY
     Dosage: UNK UNK, QWK
     Route: 065

REACTIONS (13)
  - Nerve compression [Unknown]
  - Arthritis [Recovering/Resolving]
  - Musculoskeletal disorder [Unknown]
  - Back disorder [Unknown]
  - Psoriasis [Not Recovered/Not Resolved]
  - Joint range of motion decreased [Unknown]
  - Stress [Unknown]
  - Joint swelling [Unknown]
  - Cardiac disorder [Unknown]
  - Peripheral swelling [Unknown]
  - Mobility decreased [Unknown]
  - Impaired work ability [Unknown]
  - Joint stiffness [Not Recovered/Not Resolved]

NARRATIVE: CASE EVENT DATE: 2015
